FAERS Safety Report 8823071 (Version 1)
Quarter: 2012Q4

REPORT INFORMATION
  Report Type: 
  Country: ES (occurrence: ES)
  Receive Date: 20121003
  Receipt Date: 20121003
  Transmission Date: 20130627
  Serious: Yes (Other)
  Sender: FDA-Public Use
  Company Number: PHHY2012ES083139

PATIENT
  Age: 42 Year

DRUGS (2)
  1. TOPIRAMATE [Suspect]
     Indication: WEIGHT DECREASED
  2. VENLAFAXINE [Concomitant]
     Dosage: 150 mg, UNK

REACTIONS (8)
  - Choroidal effusion [Recovered/Resolved]
  - Angle closure glaucoma [Recovered/Resolved]
  - Visual acuity reduced [Recovered/Resolved]
  - Conjunctival oedema [Recovered/Resolved]
  - Corneal oedema [Recovered/Resolved]
  - Intraocular pressure increased [Recovered/Resolved]
  - Choroidal detachment [Recovered/Resolved]
  - Myopia [Recovered/Resolved]
